FAERS Safety Report 6760392-5 (Version None)
Quarter: 2010Q2

REPORT INFORMATION
  Report Type: 
  Country: None (occurrence: None)
  Receive Date: 20100604
  Receipt Date: 20100520
  Transmission Date: 20101027
  Serious: Yes (Hospitalization)
  Sender: FDA-Public Use
  Company Number: AE 2010-089

PATIENT
  Age: 30 Year
  Sex: Female

DRUGS (2)
  1. CLOZAPINE [Suspect]
     Indication: SCHIZOPHRENIA, PARANOID TYPE
     Dosage: 400MG DAILY PO
     Route: 048
     Dates: start: 20060101, end: 20090101
  2. VALPROATE SODIUM [Concomitant]

REACTIONS (7)
  - CEREBRAL VENOUS THROMBOSIS [None]
  - CONVULSION [None]
  - FATIGUE [None]
  - HEMIPARESIS [None]
  - IRRITABILITY [None]
  - POOR PERSONAL HYGIENE [None]
  - VOMITING [None]
